FAERS Safety Report 11511073 (Version 1)
Quarter: 2015Q3

REPORT INFORMATION
  Report Type: Report from Study
  Country: US (occurrence: US)
  Receive Date: 20150915
  Receipt Date: 20150915
  Transmission Date: 20151125
  Serious: Yes (Hospitalization)
  Sender: FDA-Public Use
  Company Number: US-BAXALTA-2014BAX073664

PATIENT
  Age: 52 Year
  Sex: Male
  Weight: 64.5 kg

DRUGS (9)
  1. PEGYLATED COAGULATION FACTOR VIII [Suspect]
     Active Substance: RURIOCTOCOG ALFA PEGOL
     Indication: FACTOR VIII DEFICIENCY
  2. METOCLOPRAMIDE. [Concomitant]
     Active Substance: METOCLOPRAMIDE
     Indication: IMPAIRED GASTRIC EMPTYING
     Dosage: BEFORE MEALS AND AT BEDTIME
     Route: 048
     Dates: start: 20140929
  3. INSULIN LISPRO [Concomitant]
     Active Substance: INSULIN LISPRO
     Indication: TYPE 2 DIABETES MELLITUS
     Dosage: SLIDING SCALE / WITH MEALS
     Route: 058
     Dates: start: 20140929
  4. PEGYLATED COAGULATION FACTOR VIII [Suspect]
     Active Substance: RURIOCTOCOG ALFA PEGOL
     Indication: HIP ARTHROPLASTY
     Dosage: NO DRUG ADMINISTERED
     Route: 042
  5. ONDANSETRON [Concomitant]
     Active Substance: ONDANSETRON
     Indication: NAUSEA
     Dosage: 4 MG, AS NEEDED
     Route: 048
     Dates: start: 20140929
  6. INSULIN GLARGINE [Concomitant]
     Active Substance: INSULIN GLARGINE
     Indication: TYPE 2 DIABETES MELLITUS
     Dosage: 34IU (INTERNATIONAL UNIT)1X A DAY
     Route: 058
     Dates: start: 20140929
  7. PANTOPRAZOLE [Concomitant]
     Active Substance: PANTOPRAZOLE SODIUM
     Indication: GASTROOESOPHAGEAL REFLUX DISEASE
     Dosage: EVERY MORNING AND EVERY EVENING
     Route: 048
     Dates: start: 20140903
  8. OXYCODONE [Concomitant]
     Active Substance: OXYCODONE
     Indication: ABDOMINAL PAIN
     Dosage: 5MILLIGRAMAS NEEDED
     Route: 048
     Dates: start: 20140902
  9. LORAZEPAM. [Concomitant]
     Active Substance: LORAZEPAM
     Indication: IMPAIRED GASTRIC EMPTYING
     Dosage: .5MILLIGRAMAS NEEDED
     Route: 048
     Dates: start: 20140929

REACTIONS (1)
  - Diabetic gastroparesis [Recovered/Resolved]

NARRATIVE: CASE EVENT DATE: 20141119
